FAERS Safety Report 6507067-5 (Version None)
Quarter: 2009Q4

REPORT INFORMATION
  Report Type: 
  Country: None (occurrence: None)
  Receive Date: 20091221
  Receipt Date: 20091209
  Transmission Date: 20100525
  Serious: Yes (Hospitalization, Other)
  Sender: FDA-Public Use
  Company Number: PHEH2009US16514

PATIENT
  Sex: Female
  Weight: 48.073 kg

DRUGS (1)
  1. VIVELLE-DOT [Suspect]
     Indication: HORMONE REPLACEMENT THERAPY
     Dosage: 0.1 MG 2 TIMES PER WEEK
     Route: 062
     Dates: start: 20091006, end: 20091027

REACTIONS (4)
  - CHEST PAIN [None]
  - MUSCLE SPASMS [None]
  - PULMONARY EMBOLISM [None]
  - SINUS BRADYCARDIA [None]
